FAERS Safety Report 6786257-0 (Version None)
Quarter: 2010Q2

REPORT INFORMATION
  Report Type: 
  Country: None (occurrence: None)
  Receive Date: 20100623
  Receipt Date: 20100614
  Transmission Date: 20101027
  Serious: Yes (Hospitalization, Other)
  Sender: FDA-Public Use
  Company Number: CA-ROCHE-709445

PATIENT
  Age: 68 Year
  Sex: Male
  Weight: 85 kg

DRUGS (2)
  1. CAPECITABINE [Suspect]
     Dosage: 3150 MG PER DAY X 15 DAYS COMPLETED
     Route: 048
     Dates: start: 20090628, end: 20090720
  2. OXALIPLATINE [Suspect]
     Dosage: 100 MG PER WEEK X 3 WEEKS COMPLETED
     Route: 042
     Dates: start: 20090629, end: 20090713

REACTIONS (3)
  - DIARRHOEA [None]
  - HYPOKALAEMIA [None]
  - HYPONATRAEMIA [None]
